FAERS Safety Report 9552642 (Version 1)
Quarter: 2013Q3

REPORT INFORMATION
  Report Type: Spontaneous
  Country: US (occurrence: US)
  Receive Date: 20130925
  Receipt Date: 20130925
  Transmission Date: 20140515
  Serious: No
  Sender: FDA-Public Use
  Company Number: US-B.I. PHARMACEUTICALS,INC./RIDGEFIELD-2013-BI-29333BP

PATIENT
  Age: 60 Year
  Sex: Male

DRUGS (2)
  1. JENTADUETO [Suspect]
     Indication: HYPOGLYCAEMIA
     Dosage: STRENGTH: 2.5 MG / 1000 MG; DAILY DOSE: 5.0 MG / 2000 MG
     Route: 048
     Dates: start: 20130827
  2. JENTADUETO [Suspect]
     Indication: TYPE 2 DIABETES MELLITUS

REACTIONS (2)
  - Rhinorrhoea [Not Recovered/Not Resolved]
  - Diarrhoea [Not Recovered/Not Resolved]
